FAERS Safety Report 17860215 (Version 1)
Quarter: 2020Q2

REPORT INFORMATION
  Report Type: Spontaneous
  Country: CH (occurrence: CH)
  Receive Date: 20200604
  Receipt Date: 20200604
  Transmission Date: 20200714
  Serious: Yes (Hospitalization, Other)
  Sender: FDA-Public Use
  Company Number: NVSC2020CH149860

PATIENT
  Age: 45 Year
  Sex: Female

DRUGS (3)
  1. TRIAMCINOLONE [Suspect]
     Active Substance: TRIAMCINOLONE
     Indication: BIRDSHOT CHORIORETINOPATHY
     Dosage: UNK UKN (4 TIMES)
     Route: 065
  2. AZATHIOPRINE. [Suspect]
     Active Substance: AZATHIOPRINE
     Indication: BIRDSHOT CHORIORETINOPATHY
     Dosage: UNK UKN
     Route: 065
  3. PREDNISONE. [Suspect]
     Active Substance: PREDNISONE
     Indication: BIRDSHOT CHORIORETINOPATHY
     Dosage: UNK UKN
     Route: 048

REACTIONS (7)
  - Intraocular pressure increased [Unknown]
  - Leukopenia [Unknown]
  - Mood swings [Unknown]
  - Hirsutism [Unknown]
  - Renal impairment [Unknown]
  - Fatigue [Unknown]
  - Anaemia [Unknown]
